FAERS Safety Report 13160288 (Version 3)
Quarter: 2017Q1

REPORT INFORMATION
  Report Type: Report from Study
  Country: US (occurrence: US)
  Receive Date: 20170127
  Receipt Date: 20170313
  Transmission Date: 20170428
  Serious: Yes (Life-Threatening, Other)
  Sender: FDA-Public Use
  Company Number: US-BRISTOL-MYERS SQUIBB COMPANY-20871083

PATIENT
  Age: 54 Year
  Sex: Male
  Weight: 93 kg

DRUGS (5)
  1. IPILIMUMAB [Suspect]
     Active Substance: IPILIMUMAB
     Indication: MALIGNANT MELANOMA
     Dosage: 21FEB14
     Route: 042
     Dates: start: 20140110, end: 20140509
  2. MULTI VITAMIN [Concomitant]
     Active Substance: VITAMINS
     Indication: PRODUCT USED FOR UNKNOWN INDICATION
     Dosage: UNK
     Route: 065
     Dates: start: 20131115
  3. LEVOTHYROXINE. [Concomitant]
     Active Substance: LEVOTHYROXINE
     Indication: PRODUCT USED FOR UNKNOWN INDICATION
     Dosage: UNK
     Route: 065
     Dates: start: 20140317
  4. NIVOLUMAB [Suspect]
     Active Substance: NIVOLUMAB
     Indication: MALIGNANT MELANOMA
     Dosage: 21FEB14
     Route: 042
     Dates: start: 20140110, end: 20140509
  5. BETAMETHASONE. [Concomitant]
     Active Substance: BETAMETHASONE
     Indication: PRODUCT USED FOR UNKNOWN INDICATION
     Dosage: .05 %, UNK
     Route: 065
     Dates: start: 20140123

REACTIONS (7)
  - Adrenal insufficiency [Recovered/Resolved with Sequelae]
  - Autoimmune thyroiditis [Unknown]
  - Hepatotoxicity [Unknown]
  - Hypophysitis [Unknown]
  - Fulminant type 1 diabetes mellitus [Unknown]
  - Colitis [Unknown]
  - Rash [Recovered/Resolved]

NARRATIVE: CASE EVENT DATE: 2014
